FAERS Safety Report 5960878-7 (Version None)
Quarter: 2008Q4

REPORT INFORMATION
  Report Type: 
  Country: None (occurrence: None)
  Receive Date: 20081118
  Receipt Date: 20081103
  Transmission Date: 20090506
  Serious: Yes (Hospitalization)
  Sender: FDA-Public Use
  Company Number: 2008S1019939

PATIENT
  Age: 67 Year
  Sex: Female

DRUGS (8)
  1. NEBIVOLOL HCL [Suspect]
     Indication: DRUG USE FOR UNKNOWN INDICATION
     Dosage: 2.5 MG;DAILY;ORAL
     Route: 048
  2. CORDARONE [Suspect]
     Indication: ATRIAL FIBRILLATION
     Dosage: 100 MG;DAILYL;ORAL
     Route: 048
     Dates: start: 20070301, end: 20080901
  3. AMARYL [Concomitant]
  4. TAREG [Concomitant]
  5. TAHOR [Concomitant]
  6. INIPOMP [Concomitant]
  7. LEVOTHYROXINE SODIUM [Concomitant]
  8. VITAMIN K ANTAGONISTS [Concomitant]

REACTIONS (1)
  - INTERSTITIAL LUNG DISEASE [None]
